FAERS Safety Report 8036319-5 (Version None)
Quarter: 2012Q1

REPORT INFORMATION
  Report Type: 
  Country: None (occurrence: None)
  Receive Date: 20120111
  Receipt Date: 20111014
  Transmission Date: 20120608
  Serious: No
  Sender: FDA-Public Use
  Company Number: US-GLAXOSMITHKLINE-A0949150A

PATIENT
  Age: 67 Year
  Sex: Male

DRUGS (5)
  1. GREEN TEA [Concomitant]
  2. VESICARE [Concomitant]
  3. MULTI-VITAMIN [Concomitant]
  4. JALYN [Suspect]
     Indication: BENIGN PROSTATIC HYPERPLASIA
     Dosage: 1CAP PER DAY
     Route: 048
     Dates: start: 20100901
  5. CAMOMILE TEA [Concomitant]

REACTIONS (2)
  - DRUG INEFFECTIVE [None]
  - MUSCLE SPASMS [None]
